FAERS Safety Report 5416595-5 (Version None)
Quarter: 2007Q3

REPORT INFORMATION
  Report Type: 
  Country: None (occurrence: None)
  Receive Date: 20070814
  Receipt Date: 20070814
  Transmission Date: 20080115
  Serious: Yes (Other)
  Sender: FDA-Public Use
  Company Number: None

PATIENT
  Age: 79 Year
  Sex: Female

DRUGS (2)
  1. CLONIDINE [Suspect]
     Indication: HYPERTENSION
     Dosage: 0.1MG 1 TABLET TWICE A D PO
     Route: 048
     Dates: start: 20070409, end: 20070409
  2. CLONIDINE [Suspect]
     Indication: HYPERTENSION
     Dosage: 0.1MG 1 TABLET TWICE A D PO
     Route: 048
     Dates: start: 20070812, end: 20070813

REACTIONS (6)
  - DIZZINESS [None]
  - DRUG INTOLERANCE [None]
  - FEELING ABNORMAL [None]
  - PHARMACEUTICAL PRODUCT COMPLAINT [None]
  - SOMNOLENCE [None]
  - VERTIGO [None]
